FAERS Safety Report 7418477-6 (Version None)
Quarter: 2011Q2

REPORT INFORMATION
  Report Type: 
  Country: None (occurrence: None)
  Receive Date: 20110415
  Receipt Date: 20110406
  Transmission Date: 20111010
  Serious: Yes (Hospitalization, Other)
  Sender: FDA-Public Use
  Company Number: US-MERCK-0805USA00449

PATIENT
  Age: 51 Year
  Sex: Female

DRUGS (1)
  1. FOSAMAX [Suspect]
     Indication: OSTEOPOROSIS
     Route: 048
     Dates: start: 19970101, end: 20051201

REACTIONS (47)
  - PERIPHERAL VASCULAR DISORDER [None]
  - ANGINA PECTORIS [None]
  - INTERVERTEBRAL DISC DISORDER [None]
  - FISTULA DISCHARGE [None]
  - OSTEOPENIA [None]
  - DIABETIC NEUROPATHY [None]
  - CORONARY ARTERY DISEASE [None]
  - ACTINOMYCOSIS [None]
  - GINGIVAL ABSCESS [None]
  - PAIN IN EXTREMITY [None]
  - ORAL CANDIDIASIS [None]
  - DERMATITIS CONTACT [None]
  - OSTEONECROSIS OF JAW [None]
  - BURSA CALCIFICATION [None]
  - EXTRASKELETAL OSSIFICATION [None]
  - OSTEOMYELITIS [None]
  - ARTHRALGIA [None]
  - NEUROPATHY PERIPHERAL [None]
  - ADVERSE DRUG REACTION [None]
  - CHRONIC OBSTRUCTIVE PULMONARY DISEASE [None]
  - PERONEAL NERVE PALSY [None]
  - SPINAL DISORDER [None]
  - INTERVERTEBRAL DISC PROTRUSION [None]
  - ERYTHEMA [None]
  - TOOTH DISORDER [None]
  - SLEEP APNOEA SYNDROME [None]
  - CHOLECYSTITIS [None]
  - ABSCESS [None]
  - ANKLE FRACTURE [None]
  - DIVERTICULUM [None]
  - IMPAIRED HEALING [None]
  - GASTROOESOPHAGEAL REFLUX DISEASE [None]
  - DYSPLASIA [None]
  - ORAL DISORDER [None]
  - BACK PAIN [None]
  - CHEST PAIN [None]
  - LIPOSARCOMA [None]
  - HYPOTHYROIDISM [None]
  - TOOTH ABSCESS [None]
  - POLYP COLORECTAL [None]
  - OVARIAN DISORDER [None]
  - TRANSIENT ISCHAEMIC ATTACK [None]
  - INTERMITTENT CLAUDICATION [None]
  - GASTRITIS [None]
  - DEPRESSION [None]
  - ROTATOR CUFF SYNDROME [None]
  - URINARY TRACT INFECTION [None]
